FAERS Safety Report 15435221 (Version 2)
Quarter: 2018Q4

REPORT INFORMATION
  Report Type: Spontaneous
  Country: GB (occurrence: GB)
  Receive Date: 20180927
  Receipt Date: 20181009
  Transmission Date: 20190204
  Serious: Yes (Hospitalization, Other)
  Sender: FDA-Public Use
  Company Number: GB-PFIZER INC-2018384211

PATIENT
  Age: 40 Year
  Sex: Male

DRUGS (2)
  1. CLINDAMYCIN HCL [Suspect]
     Active Substance: CLINDAMYCIN HYDROCHLORIDE
     Indication: PNEUMOCYSTIS JIROVECII PNEUMONIA
     Dosage: 2.4 G, DAILY
  2. PRIMAQUINE PHOSPHATE. [Suspect]
     Active Substance: PRIMAQUINE PHOSPHATE
     Indication: PNEUMOCYSTIS JIROVECII PNEUMONIA
     Dosage: 15 MG, DAILY

REACTIONS (3)
  - Dyspnoea [Recovered/Resolved]
  - Cyanosis [Recovered/Resolved]
  - Methaemoglobinaemia [Recovered/Resolved]
